FAERS Safety Report 23659827 (Version 4)
Quarter: 2025Q4

REPORT INFORMATION
  Report Type: Spontaneous
  Country: US (occurrence: US)
  Receive Date: 20240321
  Receipt Date: 20251229
  Transmission Date: 20260119
  Serious: No
  Sender: SANOFI AVENTIS
  Company Number: US-SA-SAC20240318001225

PATIENT
  Age: 4 Year
  Sex: Male

DRUGS (2)
  1. DUPIXENT [Suspect]
     Active Substance: DUPILUMAB
     Indication: Psoriasis
     Dosage: 300 MG, Q4W
     Route: 058
     Dates: start: 202311, end: 202403
  2. DUPIXENT [Suspect]
     Active Substance: DUPILUMAB
     Indication: Eczema
     Dosage: 300 MG, Q4W
     Route: 058
     Dates: start: 2024

REACTIONS (11)
  - Psoriasis [Recovering/Resolving]
  - Skin burning sensation [Recovering/Resolving]
  - Erythema [Recovering/Resolving]
  - Condition aggravated [Recovering/Resolving]
  - Pruritus [Recovering/Resolving]
  - Eczema [Recovering/Resolving]
  - Rash erythematous [Recovering/Resolving]
  - Skin irritation [Recovering/Resolving]
  - Inappropriate schedule of product administration [Recovering/Resolving]
  - Therapeutic response decreased [Recovering/Resolving]
  - Product use in unapproved indication [Unknown]

NARRATIVE: CASE EVENT DATE: 20231101
